FAERS Safety Report 4588778-8 (Version None)
Quarter: 2005Q1

REPORT INFORMATION
  Report Type: 
  Country: None (occurrence: None)
  Receive Date: 20050222
  Receipt Date: 20041222
  Transmission Date: 20050727
  Serious: Yes (Death, Other)
  Sender: FDA-Public Use
  Company Number: PHBS2004JP17291

PATIENT
  Age: 8 Year
  Sex: Male
  Weight: 17 kg

DRUGS (9)
  1. PREDONINE [Suspect]
     Dosage: 20 MG/DAY
     Route: 042
     Dates: start: 20040416, end: 20040419
  2. PREDONINE [Suspect]
     Dosage: 30 MG/DAY
     Route: 042
     Dates: start: 20040420
  3. PREDONINE [Suspect]
     Dosage: 20 MG/DAY
     Route: 042
     Dates: start: 20040427
  4. MABLIN [Suspect]
     Dosage: 10 G/DAY
     Route: 048
     Dates: start: 20040401, end: 20040404
  5. ALKERAN [Suspect]
     Dosage: 65 MG/DAY
     Route: 042
     Dates: start: 20040405, end: 20040406
  6. ZOVIRAX [Concomitant]
  7. SANDIMMUNE [Suspect]
     Indication: CORD BLOOD TRANSPLANT THERAPY
     Dosage: 60 MG/DAY
     Route: 042
     Dates: start: 20040413, end: 20040423
  8. SANDIMMUNE [Suspect]
     Dosage: 30 MG/DAY
     Route: 042
     Dates: start: 20040424
  9. SANDIMMUNE [Suspect]
     Dosage: 30 MG/DAY
     Route: 042
     Dates: start: 20040408, end: 20040412

REACTIONS (27)
  - ACUTE RESPIRATORY DISTRESS SYNDROME [None]
  - AKINESIA [None]
  - AMNESIA [None]
  - BLOOD PRESSURE INCREASED [None]
  - BLOOD URINE PRESENT [None]
  - DEPRESSED LEVEL OF CONSCIOUSNESS [None]
  - DYSKINESIA [None]
  - ENCEPHALITIS VIRAL [None]
  - EPILEPSY [None]
  - GRAFT VERSUS HOST DISEASE [None]
  - HAEMATOCHEZIA [None]
  - HEART RATE DECREASED [None]
  - HYPERKALAEMIA [None]
  - HYPERKINESIA [None]
  - LUMBAR PUNCTURE ABNORMAL [None]
  - PNEUMOMEDIASTINUM [None]
  - PNEUMONIA [None]
  - PRODUCTIVE COUGH [None]
  - PRURITUS [None]
  - PULMONARY HAEMORRHAGE [None]
  - RALES [None]
  - RASH [None]
  - RESPIRATORY ARREST [None]
  - RESPIRATORY FAILURE [None]
  - RESUSCITATION [None]
  - SLEEP DISORDER [None]
  - SUBCUTANEOUS EMPHYSEMA [None]
